FAERS Safety Report 10532863 (Version 1)
Quarter: 2014Q4

REPORT INFORMATION
  Report Type: Spontaneous
  Country: FR (occurrence: FR)
  Receive Date: 20141022
  Receipt Date: 20141022
  Transmission Date: 20150529
  Serious: Yes (Other)
  Sender: FDA-Public Use
  Company Number: FR-ROCHE-1477953

PATIENT
  Age: 84 Year
  Sex: Male

DRUGS (14)
  1. APROVEL [Concomitant]
     Active Substance: IRBESARTAN
     Route: 065
  2. KARDEGIC [Concomitant]
     Active Substance: ASPIRIN LYSINE
     Route: 065
  3. BRICANYL [Concomitant]
     Active Substance: TERBUTALINE SULFATE
  4. ISOPTIN [Concomitant]
     Active Substance: VERAPAMIL HYDROCHLORIDE
     Route: 065
  5. SERETIDE [Concomitant]
     Active Substance: FLUTICASONE FUROATE\SALMETEROL XINAFOATE
  6. INEXIUM [Concomitant]
     Active Substance: ESOMEPRAZOLE
     Route: 065
  7. TRANSIPEG (FRANCE) [Concomitant]
  8. ROVAMYCINE [Suspect]
     Active Substance: SPIRAMYCIN
     Indication: INFECTION
     Route: 042
     Dates: start: 20140701, end: 20140703
  9. SIMVASTATINE [Concomitant]
     Active Substance: SIMVASTATIN
  10. IMOVANE [Concomitant]
     Active Substance: ZOPICLONE
     Route: 065
  11. PREVISCAN (FRANCE) [Concomitant]
     Active Substance: FLUINDIONE
  12. ROCEPHINE [Suspect]
     Active Substance: CEFTRIAXONE SODIUM
     Indication: INFECTION
     Route: 042
     Dates: start: 20140630, end: 20140701
  13. OFLOCET (FRANCE) [Suspect]
     Active Substance: OFLOXACIN
     Indication: INFECTION
     Route: 042
     Dates: start: 20140630, end: 20140701
  14. PARACETAMOL [Concomitant]
     Active Substance: ACETAMINOPHEN

REACTIONS (1)
  - Cholestasis [Recovered/Resolved]

NARRATIVE: CASE EVENT DATE: 20140702
